FAERS Safety Report 9209644 (Version 2)
Quarter: 2013Q2

REPORT INFORMATION
  Report Type: Spontaneous
  Country: US (occurrence: None)
  Receive Date: 20120820
  Receipt Date: 20121120
  Transmission Date: 20140414
  Serious: Yes (Hospitalization)
  Sender: FDA-Public Use
  Company Number: 1000037009

PATIENT
  Sex: Male

DRUGS (2)
  1. VIIBRYD [Suspect]
     Dosage: 40 MG (40 MG, 1 IN 1 D)
     Dates: end: 201203
  2. KLONOPIN [Concomitant]

REACTIONS (2)
  - Serotonin syndrome [None]
  - No adverse event [None]
